FAERS Safety Report 7237149-4 (Version None)
Quarter: 2011Q1

REPORT INFORMATION
  Report Type: 
  Country: None (occurrence: None)
  Receive Date: 20110121
  Receipt Date: 20101130
  Transmission Date: 20110831
  Serious: Yes (Hospitalization)
  Sender: FDA-Public Use
  Company Number: US-BAYER-201033807NA

PATIENT
  Sex: Female

DRUGS (7)
  1. YASMIN [Suspect]
     Indication: PRODUCT USED FOR UNKNOWN INDICATION
     Dosage: UNK
     Route: 048
     Dates: start: 20070615
  2. MARIJUANA [Concomitant]
     Dosage: USE DURING THE 20 DAYS BEFORE THE ONSET OF INJURIES (PER PFS)
  3. NSAID'S [Concomitant]
  4. YAZ [Suspect]
     Indication: CONTRACEPTION
     Route: 048
     Dates: start: 20060101, end: 20070101
  5. ANTIMIGRAINE PREPARATIONS [Concomitant]
     Indication: MIGRAINE
  6. DROSPIRENONE AND ETHINYL ESTRADIOL [Suspect]
     Indication: PRODUCT USED FOR UNKNOWN INDICATION
     Route: 048
  7. COCAINE [Concomitant]
     Dosage: USE DURING THE 20 DAYS BEFORE THE ONSET OF INJURIES (PER PFS)

REACTIONS (1)
  - CEREBROVASCULAR ACCIDENT [None]
